FAERS Safety Report 9869543 (Version 1)
Quarter: 2014Q1

REPORT INFORMATION
  Report Type: Spontaneous
  Country: US (occurrence: US)
  Receive Date: 20140205
  Receipt Date: 20140205
  Transmission Date: 20141002
  Serious: No
  Sender: FDA-Public Use
  Company Number: US-PFIZER INC-2014030038

PATIENT
  Age: 54 Year
  Sex: Female

DRUGS (6)
  1. SUTENT [Suspect]
     Dosage: 25 MG, 1X/DAY
     Route: 048
     Dates: start: 20130816
  2. VENLAFAXINE [Concomitant]
     Dosage: UNK
  3. WARFARIN [Concomitant]
     Dosage: UNK
  4. TOPIRAMATE [Concomitant]
     Dosage: UNK
  5. ENOXAPARIN [Concomitant]
     Dosage: UNK
  6. FISH OIL [Concomitant]
     Dosage: UNK

REACTIONS (2)
  - Fatigue [Unknown]
  - Musculoskeletal pain [Unknown]
